FAERS Safety Report 26189620 (Version 1)
Quarter: 2025Q4

REPORT INFORMATION
  Report Type: Report from Study
  Country: US (occurrence: None)
  Receive Date: 20251223
  Receipt Date: 20251223
  Transmission Date: 20260118
  Serious: Yes (Hospitalization, Other)
  Sender: UCB
  Company Number: US-UCBSA-2025080446

PATIENT
  Age: 80 Year

DRUGS (1)
  1. LACOSAMIDE [Suspect]
     Active Substance: LACOSAMIDE
     Indication: Epilepsy
     Dosage: 100 MILLIGRAM, 1 TABLET 2X/DAY (BID)
     Route: 061

REACTIONS (3)
  - Heart rate increased [Unknown]
  - Cardiac pacemaker insertion [Unknown]
  - Urinary tract infection [Unknown]
